FAERS Safety Report 24259014 (Version 1)
Quarter: 2024Q3

REPORT INFORMATION
  Report Type: Spontaneous
  Country: US (occurrence: US)
  Receive Date: 20240828
  Receipt Date: 20240828
  Transmission Date: 20241017
  Serious: Yes (Other)
  Sender: PFIZER
  Company Number: US-PFIZER INC-PV202400111666

PATIENT
  Sex: Female

DRUGS (2)
  1. LORAZEPAM [Suspect]
     Active Substance: LORAZEPAM
     Dosage: 2 MILLIGRAMS A DAY
  2. LORAZEPAM [Suspect]
     Active Substance: LORAZEPAM
     Dosage: SHE^S AT .25 WHICH IS A QUARTER

REACTIONS (2)
  - Drug dependence [Not Recovered/Not Resolved]
  - Product use issue [Not Recovered/Not Resolved]
